FAERS Safety Report 14098466 (Version 2)
Quarter: 2017Q4

REPORT INFORMATION
  Report Type: Spontaneous
  Country: JP (occurrence: JP)
  Receive Date: 20171017
  Receipt Date: 20171201
  Transmission Date: 20180321
  Serious: Yes (Life-Threatening, Other)
  Sender: FDA-Public Use
  Company Number: JP-009507513-1710JPN000749J

PATIENT
  Age: 45 Year
  Sex: Male
  Weight: 81 kg

DRUGS (9)
  1. SULBACTAM SODIUM_CEFOPERAZONE SODIUM [Concomitant]
     Indication: ENDOCARDITIS
     Dosage: 3 G, UNKNOWN
     Route: 065
     Dates: start: 20170929, end: 20171002
  2. VANCOMYCIN [Concomitant]
     Active Substance: VANCOMYCIN
     Indication: ENDOCARDITIS
     Dosage: 2400 MG, UNKNOWN
     Route: 042
     Dates: start: 20171002, end: 20171004
  3. LINEZOLID. [Concomitant]
     Active Substance: LINEZOLID
     Indication: ENDOCARDITIS
     Dosage: 1200 MG, UNKNOWN
     Route: 042
     Dates: start: 20171005, end: 20171006
  4. LIXIANA [Concomitant]
     Active Substance: EDOXABAN TOSYLATE
     Dosage: 60 MG, UNKNOWN
     Route: 048
     Dates: start: 20170609
  5. CUBICIN [Suspect]
     Active Substance: DAPTOMYCIN
     Indication: ENDOCARDITIS
     Dosage: 770 MG, QD
     Route: 041
     Dates: start: 20171006, end: 20171006
  6. AMOXICILLIN. [Concomitant]
     Active Substance: AMOXICILLIN
     Indication: ENDOCARDITIS
     Dosage: 500 MG, QD
     Route: 042
     Dates: start: 20170928, end: 20171002
  7. LANSOPRAZOLE OD [Concomitant]
     Active Substance: LANSOPRAZOLE
     Dosage: UNK
     Route: 048
     Dates: start: 20170609
  8. LACTEC [Concomitant]
     Active Substance: CALCIUM CHLORIDE ANHYDROUS\POTASSIUM CHLORIDE\SODIUM CHLORIDE\SODIUM LACTATE
     Dosage: UNK
     Route: 051
     Dates: start: 20171006
  9. SODIUM CHLORIDE. [Concomitant]
     Active Substance: SODIUM CHLORIDE
     Dosage: 100 ML, UNKNOWN
     Route: 041

REACTIONS (1)
  - Anaphylactic shock [Recovered/Resolved]

NARRATIVE: CASE EVENT DATE: 20171006
